FAERS Safety Report 15560035 (Version 1)
Quarter: 2018Q4

REPORT INFORMATION
  Report Type: Spontaneous
  Country: US (occurrence: US)
  Receive Date: 20181023
  Receipt Date: 20181023
  Transmission Date: 20190205
  Serious: No
  Sender: FDA-Public Use
  Company Number: None

PATIENT
  Age: 38 Year
  Sex: Female

DRUGS (1)
  1. TREMFYA [Suspect]
     Active Substance: GUSELKUMAB
     Indication: PSORIASIS
     Dosage: INJECT 100MG SUBCUTANEOUSLY ON DAY 28 THEN EVERY 8 WEEKS AS DIRECTED
     Route: 058
     Dates: start: 201809

REACTIONS (1)
  - Viral infection [None]
